FAERS Safety Report 13460868 (Version 2)
Quarter: 2017Q2

REPORT INFORMATION
  Report Type: Report from Study
  Country: US (occurrence: US)
  Receive Date: 20170420
  Receipt Date: 20170421
  Transmission Date: 20170830
  Serious: Yes (Other)
  Sender: FDA-Public Use
  Company Number: US-GILEAD-2017-0268130

PATIENT
  Age: 56 Year
  Sex: Female

DRUGS (2)
  1. AMBRISENTAN [Suspect]
     Active Substance: AMBRISENTAN
     Indication: PULMONARY ARTERIAL HYPERTENSION
     Dosage: 10 MG, UNK
     Route: 065
     Dates: end: 20170410
  2. AMBRISENTAN [Suspect]
     Active Substance: AMBRISENTAN
     Dosage: 5 MG, QD
     Route: 065
     Dates: start: 20170322, end: 20170420

REACTIONS (6)
  - Epistaxis [Unknown]
  - Fatigue [Recovered/Resolved]
  - Urticaria [Unknown]
  - Gait disturbance [Recovered/Resolved]
  - Anal haemorrhage [Unknown]
  - Dyspnoea [Recovered/Resolved]
